FAERS Safety Report 4280894-3 (Version None)
Quarter: 2004Q1

REPORT INFORMATION
  Report Type: 
  Country: None (occurrence: None)
  Receive Date: 20040129
  Receipt Date: 20040121
  Transmission Date: 20041129
  Serious: Yes (Hospitalization)
  Sender: FDA-Public Use
  Company Number: US-GLAXOSMITHKLINE-A0494506A

PATIENT
  Age: 81 Year
  Sex: Female

DRUGS (8)
  1. COREG [Suspect]
     Indication: CARDIAC FAILURE CONGESTIVE
     Dosage: 6.25MG TWICE PER DAY
     Route: 048
     Dates: start: 20031201
  2. LANOXIN [Suspect]
     Indication: CARDIAC FAILURE CONGESTIVE
  3. IMDUR [Concomitant]
  4. LASIX [Concomitant]
  5. ALDACTONE [Concomitant]
  6. COUMADIN [Concomitant]
  7. DARVOCET [Concomitant]
  8. ZESTRIL [Concomitant]

REACTIONS (8)
  - ABDOMINAL PAIN UPPER [None]
  - BRADYCARDIA [None]
  - DEPRESSED LEVEL OF CONSCIOUSNESS [None]
  - DYSPNOEA [None]
  - INSOMNIA [None]
  - MALAISE [None]
  - SWELLING [None]
  - THERAPEUTIC AGENT TOXICITY [None]
